FAERS Safety Report 21619868 (Version 3)
Quarter: 2025Q1

REPORT INFORMATION
  Report Type: Report from Study
  Country: US (occurrence: US)
  Receive Date: 20221121
  Receipt Date: 20250208
  Transmission Date: 20250408
  Serious: Yes (Hospitalization)
  Sender: AVEO PHARMACEUTICALS
  Company Number: US-AVEO ONCOLOGY-2022-AVEO-US000528

PATIENT

DRUGS (3)
  1. FOTIVDA [Suspect]
     Active Substance: TIVOZANIB HYDROCHLORIDE
     Indication: Renal cell carcinoma
     Dosage: 1.34 MG, DAILY FOR 21 DAYS WITH 7 DAYS OFF (28-DAY CYCLE)
     Route: 048
     Dates: start: 20221014, end: 20221103
  2. AMLODIPINE BESYLATE\BENAZEPRIL HYDROCHLORIDE [Concomitant]
     Active Substance: AMLODIPINE BESYLATE\BENAZEPRIL HYDROCHLORIDE
     Route: 048
  3. ACETAMINOPHEN AND CODEINE [Concomitant]
     Active Substance: ACETAMINOPHEN\CODEINE PHOSPHATE
     Route: 048

REACTIONS (2)
  - Infection [Unknown]
  - Arthropathy [Unknown]

NARRATIVE: CASE EVENT DATE: 20221101
